FAERS Safety Report 6750011-6 (Version None)
Quarter: 2010Q2

REPORT INFORMATION
  Report Type: 
  Country: None (occurrence: None)
  Receive Date: 20100601
  Receipt Date: 20100526
  Transmission Date: 20101027
  Serious: Yes (Hospitalization)
  Sender: FDA-Public Use
  Company Number: GXKR2010DE05800

PATIENT
  Age: 65 Year
  Sex: Female

DRUGS (18)
  1. ASPIRIN [Suspect]
     Dosage: 100 MG, QD
     Route: 048
     Dates: start: 20070913
  2. MARCUMAR [Interacting]
     Dosage: 1 DF, QD
     Route: 048
     Dates: end: 20070908
  3. ACTRAPHANE HM [Concomitant]
     Dosage: 14-0-24 IU/DAILY
     Route: 058
     Dates: end: 20070913
  4. ACTRAPHANE HM [Concomitant]
     Dosage: 14 IU, QD
     Route: 058
     Dates: start: 20070914
  5. AMARYL [Concomitant]
     Dosage: 2 MG, BID
     Route: 048
     Dates: end: 20070910
  6. FURORESE [Concomitant]
     Dosage: 40 MG, QD
     Route: 048
  7. ALDACTONE [Concomitant]
     Dosage: 50 MG, QD
     Route: 048
     Dates: end: 20070910
  8. ALDACTONE [Concomitant]
     Dosage: 25 MG, QD
     Route: 048
     Dates: start: 20070911
  9. SIMVASTATIN [Concomitant]
     Dosage: 20 MG, QD
     Route: 048
  10. CURATODERM [Concomitant]
  11. UNACID PD ORAL [Concomitant]
     Dosage: UNK
     Route: 048
     Dates: start: 20070909, end: 20070914
  12. PERAZINE ^NEURAXPHARM^ [Concomitant]
     Dosage: 100 MG, BID
     Route: 048
     Dates: start: 20070909
  13. PERAZINE ^NEURAXPHARM^ [Concomitant]
     Dosage: 50 MG, QD
     Route: 048
     Dates: start: 20070913, end: 20070914
  14. PERAZINE ^NEURAXPHARM^ [Concomitant]
     Dosage: UNK
     Route: 048
     Dates: start: 20070919
  15. AMISULPRIDE [Concomitant]
     Dosage: 100 MG, BID
     Route: 048
     Dates: start: 20070909, end: 20070914
  16. AMISULPRIDE [Concomitant]
     Dosage: 100 MG, TID
     Route: 048
     Dates: start: 20070918
  17. TARMED [Concomitant]
     Dosage: UNK
  18. LYGAL KOPFSALBE [Concomitant]

REACTIONS (2)
  - HAEMOPTYSIS [None]
  - RESPIRATORY TRACT HAEMORRHAGE [None]
